FAERS Safety Report 13191569 (Version 1)
Quarter: 2017Q1

REPORT INFORMATION
  Report Type: Report from Study
  Country: JP (occurrence: JP)
  Receive Date: 20170207
  Receipt Date: 20170207
  Transmission Date: 20170428
  Serious: Yes (Death, Life-Threatening, Other)
  Sender: FDA-Public Use
  Company Number: JP-ROCHE-1672806

PATIENT
  Age: 77 Year
  Sex: Female
  Weight: 38 kg

DRUGS (2)
  1. VEMURAFENIB [Suspect]
     Active Substance: VEMURAFENIB
     Dosage: DTAE OF MOST RECENT DOSE: 18/JAN/2016
     Route: 048
     Dates: start: 20151109
  2. VEMURAFENIB [Suspect]
     Active Substance: VEMURAFENIB
     Indication: MALIGNANT MELANOMA
     Route: 048
     Dates: start: 20150813, end: 20151028

REACTIONS (6)
  - Death [Fatal]
  - Arthralgia [Unknown]
  - Myalgia [Unknown]
  - Anaemia [Recovered/Resolved]
  - Malaise [Recovered/Resolved]
  - Erythema multiforme [Unknown]

NARRATIVE: CASE EVENT DATE: 201509
